FAERS Safety Report 5006950-X (Version None)
Quarter: 2006Q2

REPORT INFORMATION
  Report Type: 
  Country: None (occurrence: None)
  Receive Date: 20060516
  Receipt Date: 20060504
  Transmission Date: 20061013
  Serious: Yes (Hospitalization)
  Sender: FDA-Public Use
  Company Number: 6022399

PATIENT
  Age: 74 Year
  Sex: Male

DRUGS (7)
  1. LEVOTHYROXINE SODIUM [Suspect]
     Indication: DRUG USE FOR UNKNOWN INDICATION
     Dosage: 125,0000 MCG (125 MCG, 1 IN 1 D) ORAL
     Route: 048
  2. VOLTAREN [Suspect]
     Indication: DRUG USE FOR UNKNOWN INDICATION
     Dosage: 1,00 DOSAGE FORMS (1 DOSAGE FORMS, 1 IN 1 D) ORAL
     Route: 048
     Dates: start: 20060315, end: 20060321
  3. VOLTAREN [Suspect]
     Indication: DRUG USE FOR UNKNOWN INDICATION
     Dosage: 4,00 DOSAGE FORMS (1 DOSAGE FORMS, 4 IN 1 D) TOPICAL
     Route: 061
     Dates: start: 20060315, end: 20060411
  4. COUMADIN [Suspect]
     Indication: DRUG USE FOR UNKNOWN INDICATION
     Dosage: 4,00 MG (2 MG, 2 IN 1 D) ORAL
     Route: 048
     Dates: start: 20050315, end: 20060411
  5. SECTRAL [Concomitant]
  6. COLCHICINE HOUDE (TABLET) (COLCHICINE) [Concomitant]
  7. SPECIAFOLDINE (TABLET) (FOLIC ACID) [Concomitant]

REACTIONS (3)
  - COAGULOPATHY [None]
  - DRUG INTERACTION [None]
  - INTERNATIONAL NORMALISED RATIO INCREASED [None]
